FAERS Safety Report 14246357 (Version 1)
Quarter: 2017Q4

REPORT INFORMATION
  Report Type: Spontaneous
  Country: US (occurrence: None)
  Receive Date: 20171201
  Receipt Date: 20171201
  Transmission Date: 20180321
  Serious: Yes (Hospitalization)
  Sender: FDA-Public Use
  Company Number: None

PATIENT
  Sex: Female
  Weight: 66.9 kg

DRUGS (8)
  1. SODIUM CHLORIDE. [Concomitant]
     Active Substance: SODIUM CHLORIDE
  2. PROTONIX [Concomitant]
     Active Substance: PANTOPRAZOLE SODIUM
  3. ZEPATIER [Suspect]
     Active Substance: ELBASVIR\GRAZOPREVIR
     Indication: HEPATITIS C
     Dosage: 50/100MG 1X DAILY PO
     Route: 048
     Dates: start: 20170506
  4. TYLENOL [Concomitant]
     Active Substance: ACETAMINOPHEN
  5. CENTRUM [Concomitant]
     Active Substance: VITAMINS
  6. ANASTROZOLE. [Concomitant]
     Active Substance: ANASTROZOLE
  7. CYMBALTA [Concomitant]
     Active Substance: DULOXETINE HYDROCHLORIDE
  8. LYRICA [Concomitant]
     Active Substance: PREGABALIN

REACTIONS (6)
  - Vomiting [None]
  - Diarrhoea [None]
  - Defaecation urgency [None]
  - Nausea [None]
  - Peptic ulcer haemorrhage [None]
  - Upper gastrointestinal haemorrhage [None]

NARRATIVE: CASE EVENT DATE: 20170630
